FAERS Safety Report 9659684 (Version 1)
Quarter: 2013Q4

REPORT INFORMATION
  Report Type: Spontaneous
  Country: US (occurrence: None)
  Receive Date: 20131029
  Receipt Date: 20131029
  Transmission Date: 20140711
  Serious: Yes (Other)
  Sender: FDA-Public Use
  Company Number: US-013421

PATIENT
  Age: 79 Year
  Sex: Male

DRUGS (1)
  1. MINIRIN [Suspect]
     Indication: DIABETES INSIPIDUS
     Dosage: (2 SPRAYS DAILY IN THE AFTERNOON NASAL)
     Dates: end: 201309

REACTIONS (4)
  - Hyponatraemia [None]
  - Confusional state [None]
  - Lethargy [None]
  - Overdose [None]
